FAERS Safety Report 6243668-X (Version None)
Quarter: 2009Q2

REPORT INFORMATION
  Report Type: 
  Country: None (occurrence: None)
  Receive Date: 20090618
  Receipt Date: 20090116
  Transmission Date: 20091009
  Serious: Yes (Other)
  Sender: FDA-Public Use
  Company Number: CIP09000130

PATIENT
  Age: 76 Year
  Sex: Female
  Weight: 49.9 kg

DRUGS (3)
  1. ACTONEL [Suspect]
     Indication: OSTEOPOROSIS
     Dosage: 35 MG, UNKNOWN, ORAL
     Route: 048
  2. SYNTHROID [Concomitant]
  3. PRAVASTATIN [Concomitant]

REACTIONS (2)
  - FALL [None]
  - HIP FRACTURE [None]
